FAERS Safety Report 19220164 (Version 1)
Quarter: 2021Q2

REPORT INFORMATION
  Report Type: Spontaneous
  Country: US (occurrence: US)
  Receive Date: 20210506
  Receipt Date: 20210506
  Transmission Date: 20210717
  Serious: Yes (Hospitalization, Other)
  Sender: FDA-Public Use
  Company Number: US-CIPLA LTD.-2021US03275

PATIENT

DRUGS (1)
  1. BUPROPION. [Suspect]
     Active Substance: BUPROPION
     Dosage: UNK, AT LEAST 100 TABLETS
     Route: 048

REACTIONS (13)
  - Bundle branch block left [Unknown]
  - Tachycardia [Unknown]
  - Electrocardiogram QRS complex prolonged [Unknown]
  - Shock [Unknown]
  - Cardiogenic shock [Unknown]
  - Ejection fraction decreased [Recovering/Resolving]
  - Left ventricular dilatation [Unknown]
  - Intentional overdose [Unknown]
  - Status epilepticus [Unknown]
  - Cardiomyopathy [Unknown]
  - Haemodynamic instability [Unknown]
  - Hallucination [Unknown]
  - Hypokinesia [Unknown]
